FAERS Safety Report 11538315 (Version 2)
Quarter: 2015Q4

REPORT INFORMATION
  Report Type: Report from Study
  Country: US (occurrence: US)
  Receive Date: 20150922
  Receipt Date: 20151024
  Transmission Date: 20160304
  Serious: Yes (Hospitalization, Congenital Anomaly, Other)
  Sender: FDA-Public Use
  Company Number: US-ABBVIE-14P-163-1321159-00

PATIENT

DRUGS (2)
  1. HUMIRA [Suspect]
     Active Substance: ADALIMUMAB
     Indication: MATERNAL EXPOSURE TIMING UNSPECIFIED
     Route: 064
  2. VITAMIN D [Concomitant]
     Active Substance: CHOLECALCIFEROL
     Indication: VITAMIN SUPPLEMENTATION
     Route: 065

REACTIONS (16)
  - Foetal exposure during pregnancy [Unknown]
  - Oxygen saturation decreased [Not Recovered/Not Resolved]
  - Heart disease congenital [Recovering/Resolving]
  - Ventricular septal defect [Not Recovered/Not Resolved]
  - Placental disorder [Unknown]
  - Platelet count decreased [Recovered/Resolved]
  - Chylothorax [Recovered/Resolved]
  - Stridor [Not Recovered/Not Resolved]
  - Gastrooesophageal reflux disease [Not Recovered/Not Resolved]
  - Breech presentation [Unknown]
  - Necrotising colitis [Recovered/Resolved]
  - Congenital hypothyroidism [Not Recovered/Not Resolved]
  - Obstructive airways disorder [Not Recovered/Not Resolved]
  - Atrial septal defect [Not Recovered/Not Resolved]
  - Trisomy 21 [Not Recovered/Not Resolved]
  - Patent ductus arteriosus [Recovered/Resolved]

NARRATIVE: CASE EVENT DATE: 201507
